FAERS Safety Report 6160611-2 (Version None)
Quarter: 2009Q2

REPORT INFORMATION
  Report Type: 
  Country: None (occurrence: None)
  Receive Date: 20090420
  Receipt Date: 20090410
  Transmission Date: 20091009
  Serious: Yes (Other)
  Sender: FDA-Public Use
  Company Number: FR-ABBOTT-09P-056-0566505-00

PATIENT
  Sex: Male

DRUGS (6)
  1. ENANTONE LP [Suspect]
     Indication: PROSTATE CANCER
     Route: 030
     Dates: end: 20080901
  2. ENANTONE LP [Suspect]
     Route: 058
  3. FELODIPINE [Concomitant]
     Indication: HYPERTENSION
     Route: 048
  4. ZOXAN-TZ [Concomitant]
     Indication: PROSTATIC ADENOMA
     Route: 048
  5. FLUTICASONE PROPIONATE [Concomitant]
     Indication: ASTHMA
     Route: 055
  6. PLAVIX [Concomitant]
     Indication: ARTERITIS
     Route: 048

REACTIONS (3)
  - INJECTION SITE ABSCESS [None]
  - INJECTION SITE HAEMATOMA [None]
  - INJECTION SITE NODULE [None]
